FAERS Safety Report 4551485-1 (Version None)
Quarter: 2005Q1

REPORT INFORMATION
  Report Type: 
  Country: None (occurrence: None)
  Receive Date: 20050111
  Receipt Date: 20041230
  Transmission Date: 20050727
  Serious: Yes (Other)
  Sender: FDA-Public Use
  Company Number: 2005001504

PATIENT
  Age: 51 Year
  Sex: Female
  Weight: 52.6173 kg

DRUGS (9)
  1. ZYRTEC [Suspect]
     Indication: MULTIPLE ALLERGIES
     Dosage: 10 MG (10 MG, 1 IN 1 D), ORAL
     Route: 048
     Dates: start: 20000101
  2. PREDNISONE [Suspect]
     Indication: SYSTEMIC LUPUS ERYTHEMATOSUS
  3. CORTICOSTEROIDS (CORTICOSTEROIDS) [Suspect]
     Indication: SYSTEMIC LUPUS ERYTHEMATOSUS
  4. HYDROXYCHLOROQUINE PHOSPHATE (HYDROXYCHLOROQUINE PHOSPHATE) [Suspect]
     Indication: SYSTEMIC LUPUS ERYTHEMATOSUS
  5. AZATHIOPRINE [Suspect]
     Indication: SYSTEMIC LUPUS ERYTHEMATOSUS
  6. FEXOFENADINE HYDROCHLORIDE [Suspect]
     Indication: ILL-DEFINED DISORDER
  7. BETA BLOCKIN AGENTS (BETA BLOCKING AGENTS) [Concomitant]
  8. ESOMEPRAZOLE (ESOMEPRAZOLE0 [Concomitant]
  9. HYOSCYAMINE SULFATE AND PHENOBARBITAL [Concomitant]

REACTIONS (13)
  - CONDITION AGGRAVATED [None]
  - EROSIVE OESOPHAGITIS [None]
  - LOSS OF EMPLOYMENT [None]
  - OESOPHAGEAL SPASM [None]
  - ONYCHORRHEXIS [None]
  - OSTEOARTHRITIS [None]
  - OSTEOPOROSIS [None]
  - PAIN [None]
  - POSTNASAL DRIP [None]
  - RETCHING [None]
  - SALIVARY HYPERSECRETION [None]
  - SYSTEMIC LUPUS ERYTHEMATOSUS [None]
  - TRICHORRHEXIS [None]
